FAERS Safety Report 23539620 (Version 1)
Quarter: 2024Q1

REPORT INFORMATION
  Report Type: Spontaneous
  Country: US (occurrence: US)
  Receive Date: 20240219
  Receipt Date: 20240219
  Transmission Date: 20240409
  Serious: No
  Sender: FDA-Public Use
  Company Number: US-BRACCO-2023US01739

PATIENT
  Age: 17 Year
  Sex: Female

DRUGS (1)
  1. ISOVUE 300 [Suspect]
     Active Substance: IOPAMIDOL
     Indication: Computerised tomogram intestine
     Dosage: 100 ML, SINGLE
     Route: 042
     Dates: start: 20230410, end: 20230410

REACTIONS (1)
  - Throat irritation [Recovering/Resolving]

NARRATIVE: CASE EVENT DATE: 20230410
